FAERS Safety Report 21544749 (Version 1)
Quarter: 2022Q4

REPORT INFORMATION
  Report Type: Report from Study
  Country: TW (occurrence: TW)
  Receive Date: 20221102
  Receipt Date: 20221102
  Transmission Date: 20230113
  Serious: Yes (Death, Hospitalization)
  Sender: FDA-Public Use
  Company Number: TW-ABBVIE-4184808

PATIENT
  Sex: Male

DRUGS (1)
  1. SKYRIZI [Suspect]
     Active Substance: RISANKIZUMAB-RZAA
     Indication: Psoriasis
     Dosage: START DATE FOR EVENTS WAS 2022
     Route: 058
     Dates: start: 20220709, end: 20220806

REACTIONS (2)
  - Cardiac failure acute [Fatal]
  - Brain cancer metastatic [Unknown]
